FAERS Safety Report 9508667 (Version 2)
Quarter: 2014Q2

REPORT INFORMATION
  Report Type: Report from Study
  Country: DE (occurrence: TR)
  Receive Date: 20130909
  Receipt Date: 20140613
  Transmission Date: 20141212
  Serious: Yes (Death)
  Sender: FDA-Public Use
  Company Number: DE-ACTELION-A-US2013-88217

PATIENT
  Age: 17 Year
  Sex: 0
  Weight: 48 kg

DRUGS (2)
  1. VENTAVIS [Suspect]
     Indication: PRODUCT USED FOR UNKNOWN INDICATION
     Dosage: 6X1
     Route: 055
  2. SILDENAFIL [Concomitant]

REACTIONS (3)
  - Infection [Fatal]
  - Respiratory failure [Fatal]
  - Off label use [Unknown]
